FAERS Safety Report 5085732-7 (Version None)
Quarter: 2006Q3

REPORT INFORMATION
  Report Type: 
  Country: None (occurrence: None)
  Receive Date: 20060817
  Receipt Date: 20060120
  Transmission Date: 20061208
  Serious: Yes (Hospitalization)
  Sender: FDA-Public Use
  Company Number: 2006027740

PATIENT
  Age: 49 Year
  Sex: Male

DRUGS (1)
  1. BEXTRA [Suspect]
     Indication: MUSCULOSKELETAL CHEST PAIN
     Dosage: (20 MG, DAILY AS NEEDED)
     Dates: start: 20041122

REACTIONS (5)
  - DRUG HYPERSENSITIVITY [None]
  - RASH MACULAR [None]
  - SCAR [None]
  - STEVENS-JOHNSON SYNDROME [None]
  - VIRAL RASH [None]
